FAERS Safety Report 13371940 (Version 1)
Quarter: 2017Q1

REPORT INFORMATION
  Report Type: Spontaneous
  Country: US (occurrence: US)
  Receive Date: 20170326
  Receipt Date: 20170326
  Transmission Date: 20170429
  Serious: No
  Sender: FDA-Public Use
  Company Number: US-009507513-1702USA012199

PATIENT
  Sex: Male

DRUGS (1)
  1. INTRON A [Suspect]
     Active Substance: INTERFERON ALFA-2B
     Indication: OROPHARYNGEAL CANCER
     Dosage: STRENGTH: 18 MM UNIT / 3 ML MDV; DOSE: 0.05 ML (300,000 UNITS), THREE TIMES A WEEK
     Route: 058
     Dates: start: 20170202

REACTIONS (1)
  - Adverse drug reaction [Unknown]
